FAERS Safety Report 20659682 (Version 2)
Quarter: 2022Q2

REPORT INFORMATION
  Report Type: Spontaneous
  Country: CN (occurrence: CN)
  Receive Date: 20220331
  Receipt Date: 20220420
  Transmission Date: 20220721
  Serious: Yes (Other)
  Sender: FDA-Public Use
  Company Number: CN-GLAXOSMITHKLINE-CN2022APC053370

PATIENT
  Age: 76 Year
  Sex: Female

DRUGS (1)
  1. SERETIDE [Suspect]
     Active Substance: FLUTICASONE PROPIONATE\SALMETEROL XINAFOATE
     Indication: Cough
     Dosage: 1 PUFF(S), TID, 60 INHALATION
     Route: 055
     Dates: start: 201912

REACTIONS (11)
  - Foreign body in throat [Unknown]
  - Salivary hypersecretion [Unknown]
  - Cough [Recovering/Resolving]
  - Dry throat [Not Recovered/Not Resolved]
  - Throat irritation [Not Recovered/Not Resolved]
  - Head discomfort [Unknown]
  - Urinary incontinence [Unknown]
  - Fungal infection [Unknown]
  - Speech disorder [Unknown]
  - Off label use [Unknown]
  - Prescribed overdose [Recovered/Resolved]

NARRATIVE: CASE EVENT DATE: 20191201
